FAERS Safety Report 8409710-2 (Version None)
Quarter: 2012Q2

REPORT INFORMATION
  Report Type: 
  Country: None (occurrence: None)
  Receive Date: 20120605
  Receipt Date: 20120529
  Transmission Date: 20120825
  Serious: Yes (Hospitalization)
  Sender: FDA-Public Use
  Company Number: US-BAYER-2012-011582

PATIENT
  Age: 28 Year
  Sex: Female
  Weight: 102 kg

DRUGS (6)
  1. YASMIN [Suspect]
     Indication: CONTRACEPTION
     Dosage: UNK
     Dates: start: 20021201, end: 20030126
  2. ANTIHYPERTENSIVES [Concomitant]
     Indication: BLOOD PRESSURE MANAGEMENT
     Dosage: UNK
     Dates: start: 20040101, end: 20050101
  3. YASMIN [Suspect]
     Indication: HIRSUTISM
  4. ACCUTANE [Concomitant]
     Dosage: 20 MG, UNK
     Route: 048
     Dates: start: 20021119
  5. SULFAMETHOXAZOLE [Concomitant]
     Dosage: UNK
     Dates: start: 20021001
  6. YASMIN [Suspect]
     Indication: ACNE

REACTIONS (5)
  - PULMONARY EMBOLISM [None]
  - ANXIETY [None]
  - DEEP VEIN THROMBOSIS [None]
  - EMOTIONAL DISTRESS [None]
  - PAIN [None]
